FAERS Safety Report 25789805 (Version 1)
Quarter: 2025Q3

REPORT INFORMATION
  Report Type: Spontaneous
  Country: GB (occurrence: GB)
  Receive Date: 20250911
  Receipt Date: 20250911
  Transmission Date: 20251020
  Serious: Yes (Other)
  Sender: AUROBINDO
  Company Number: GB-MHRA-MED-202508281355526600-RQJHY

PATIENT
  Age: 72 Year
  Sex: Male

DRUGS (3)
  1. DOXAZOSIN [Suspect]
     Active Substance: DOXAZOSIN MESYLATE
     Indication: Adverse drug reaction
     Dosage: 1 MILLIGRAM, TWO TIMES A DAY
     Route: 065
     Dates: start: 20250520, end: 20250828
  2. EPLERENONE [Concomitant]
     Active Substance: EPLERENONE
     Indication: Product used for unknown indication
     Route: 065
  3. LORATADINE [Concomitant]
     Active Substance: LORATADINE
     Indication: Adverse drug reaction
     Route: 065

REACTIONS (7)
  - Dyspnoea [Recovered/Resolved]
  - Tinnitus [Recovered/Resolved]
  - Dizziness postural [Recovered/Resolved]
  - Muscular weakness [Recovered/Resolved]
  - Influenza like illness [Recovered/Resolved]
  - Peripheral swelling [Recovered/Resolved]
  - Dizziness [Recovered/Resolved]
